FAERS Safety Report 9789584 (Version 1)
Quarter: 2013Q4

REPORT INFORMATION
  Report Type: Spontaneous
  Country: JP (occurrence: JP)
  Receive Date: 20131231
  Receipt Date: 20131231
  Transmission Date: 20140711
  Serious: Yes (Death)
  Sender: FDA-Public Use
  Company Number: JP-ROCHE-1323655

PATIENT
  Age: 75 Year
  Sex: Male

DRUGS (5)
  1. AVASTIN [Suspect]
     Indication: COLON CANCER METASTATIC
     Route: 041
  2. XELODA [Suspect]
     Indication: COLON CANCER METASTATIC
     Route: 048
  3. XELODA [Suspect]
     Indication: COLON CANCER METASTATIC
     Route: 048
  4. OXALIPLATIN [Suspect]
     Indication: COLON CANCER METASTATIC
     Route: 041
  5. CETUXIMAB [Concomitant]
     Route: 065

REACTIONS (3)
  - Disease progression [Fatal]
  - Neuropathy peripheral [Unknown]
  - Malaise [Unknown]
